FAERS Safety Report 13668075 (Version 1)
Quarter: 2017Q2

REPORT INFORMATION
  Report Type: Spontaneous
  Country: US (occurrence: US)
  Receive Date: 20170620
  Receipt Date: 20170620
  Transmission Date: 20170830
  Serious: No
  Sender: FDA-Public Use
  Company Number: US-PFIZER INC-2017264413

PATIENT
  Age: 68 Year
  Sex: Female
  Weight: 63.58 kg

DRUGS (2)
  1. FORTEO [Suspect]
     Active Substance: TERIPARATIDE
     Indication: BONE DISORDER
     Dosage: 20 UG, 1X/DAY
     Dates: start: 201704
  2. XELJANZ XR [Suspect]
     Active Substance: TOFACITINIB CITRATE
     Indication: RHEUMATOID ARTHRITIS
     Dosage: 11 MG, 1X/DAY
     Route: 048

REACTIONS (12)
  - Erythema [Unknown]
  - Burns second degree [Unknown]
  - Dry skin [Unknown]
  - Visual impairment [Unknown]
  - Skin exfoliation [Recovering/Resolving]
  - Skin fissures [Unknown]
  - Cataract [Unknown]
  - Vomiting [Unknown]
  - Headache [Unknown]
  - Arthropod bite [Unknown]
  - Condition aggravated [Unknown]
  - Nausea [Unknown]

NARRATIVE: CASE EVENT DATE: 201705
